FAERS Safety Report 15999005 (Version 1)
Quarter: 2019Q1

REPORT INFORMATION
  Report Type: Spontaneous
  Country: US (occurrence: US)
  Receive Date: 20190223
  Receipt Date: 20190223
  Transmission Date: 20190418
  Serious: No
  Sender: FDA-Public Use
  Company Number: US-JNJFOC-20190201664

PATIENT
  Sex: Female

DRUGS (6)
  1. ESTRADIOL. [Concomitant]
     Active Substance: ESTRADIOL
     Indication: OESTROGEN REPLACEMENT THERAPY
     Dosage: STARTED 15 YEARS AGO??IT IS VERY MILD AND CONTROLLED
     Route: 065
     Dates: start: 2007
  2. PREDNISONE. [Concomitant]
     Active Substance: PREDNISONE
     Indication: RHEUMATOID ARTHRITIS
     Route: 065
  3. METHOTREXATE. [Suspect]
     Active Substance: METHOTREXATE
     Indication: RHEUMATOID ARTHRITIS
     Route: 065
     Dates: start: 2012, end: 20170702
  4. PREDNISONE. [Concomitant]
     Active Substance: PREDNISONE
     Indication: RHEUMATOID ARTHRITIS
     Dosage: STARTED 8 YEARS AGO DOSE AT THE TIME OF REPORTED EVENT WAS 4 MG DAILY. CURRENT DOSE WAS 15 MG DAILY.
     Route: 065
     Dates: start: 2011
  5. REMICADE [Suspect]
     Active Substance: INFLIXIMAB
     Indication: RHEUMATOID ARTHRITIS
     Dosage: 2 WEEKS APART ON FIRST AND SECOND DOSE, THEN 4 WEEKS LATER.
     Route: 042
     Dates: start: 201705, end: 201706
  6. LOTREL [Concomitant]
     Active Substance: AMLODIPINE BESYLATE\BENAZEPRIL HYDROCHLORIDE
     Indication: HYPERTENSION
     Dosage: AMLODIPINE/BENAZEPRIL - DOSE WAS 5/20
     Route: 065
     Dates: start: 2007

REACTIONS (3)
  - Hyponatraemia [Unknown]
  - Hypersensitivity [Unknown]
  - Malaise [Unknown]

NARRATIVE: CASE EVENT DATE: 2017
